FAERS Safety Report 14028112 (Version 1)
Quarter: 2017Q3

REPORT INFORMATION
  Report Type: Spontaneous
  Country: US (occurrence: US)
  Receive Date: 20170929
  Receipt Date: 20170929
  Transmission Date: 20171128
  Serious: Yes (Hospitalization)
  Sender: FDA-Public Use
  Company Number: None

PATIENT
  Age: 69 Year
  Sex: Female
  Weight: 88.2 kg

DRUGS (1)
  1. PRAVASTATIN. [Suspect]
     Active Substance: PRAVASTATIN

REACTIONS (7)
  - Hyperhidrosis [None]
  - Hypoxia [None]
  - Dehydration [None]
  - Wrong drug administered [None]
  - Nausea [None]
  - Hypotension [None]
  - Cardiac failure congestive [None]

NARRATIVE: CASE EVENT DATE: 20170928
